FAERS Safety Report 16416874 (Version 1)
Quarter: 2019Q2

REPORT INFORMATION
  Report Type: Spontaneous
  Country: US (occurrence: US)
  Receive Date: 20190611
  Receipt Date: 20190611
  Transmission Date: 20190711
  Serious: Yes (Other)
  Sender: FDA-Public Use
  Company Number: US-SA-2014SA177994

PATIENT
  Age: 61 Year
  Sex: Male

DRUGS (2)
  1. LANTUS SOLOSTAR [Suspect]
     Active Substance: INSULIN GLARGINE
     Indication: TYPE 1 DIABETES MELLITUS
     Dosage: 17 DF,HS
     Route: 065
     Dates: start: 201104
  2. LANTUS SOLOSTAR [Suspect]
     Active Substance: INSULIN GLARGINE
     Dosage: 9-10 UNITS, QD
     Route: 065

REACTIONS (4)
  - Lung neoplasm malignant [Unknown]
  - Hip fracture [Unknown]
  - Upper limb fracture [Unknown]
  - Diabetes mellitus inadequate control [Unknown]
